FAERS Safety Report 11465033 (Version 3)
Quarter: 2015Q3

REPORT INFORMATION
  Report Type: Spontaneous
  Country: US (occurrence: US)
  Receive Date: 20150907
  Receipt Date: 20150925
  Transmission Date: 20151125
  Serious: Yes (Other)
  Sender: FDA-Public Use
  Company Number: US-ROCHE-1630146

PATIENT
  Sex: Female

DRUGS (1)
  1. CLONAZEPAM (TEVA PHARM) [Suspect]
     Active Substance: CLONAZEPAM
     Indication: ANXIETY
     Dosage: TAKING SINCE 2.5 YEARS AND TAPERING THE DOSE
     Route: 065
     Dates: end: 20150902

REACTIONS (11)
  - Feeling drunk [Unknown]
  - Dizziness [Unknown]
  - Feeling abnormal [Unknown]
  - Muscle tightness [Unknown]
  - Dysphagia [Unknown]
  - Palpitations [Unknown]
  - Confusional state [Unknown]
  - Dyspnoea [Unknown]
  - Visual impairment [Unknown]
  - Hyperhidrosis [Unknown]
  - Extrasystoles [Unknown]
